FAERS Safety Report 7025185-2 (Version None)
Quarter: 2010Q3

REPORT INFORMATION
  Report Type: 
  Country: None (occurrence: None)
  Receive Date: 20100916
  Receipt Date: 20100701
  Transmission Date: 20110219
  Serious: Yes (Hospitalization)
  Sender: FDA-Public Use
  Company Number: DKLU1063246

PATIENT
  Age: 7 Month
  Sex: Female

DRUGS (3)
  1. SABRIL [Suspect]
     Indication: INFANTILE SPASMS
     Dosage: 1500 MG MILLIGRAM(S), 1 DOSE, ORAL
     Route: 048
     Dates: start: 20100624, end: 20100625
  2. PREDNISONE [Concomitant]
  3. TOPAMAX [Concomitant]

REACTIONS (5)
  - ACCIDENTAL OVERDOSE [None]
  - BRADYCARDIA [None]
  - LETHARGY [None]
  - NASAL CONGESTION [None]
  - SEDATION [None]
